FAERS Safety Report 5429534-8 (Version None)
Quarter: 2007Q3

REPORT INFORMATION
  Report Type: 
  Country: None (occurrence: None)
  Receive Date: 20070829
  Receipt Date: 20070215
  Transmission Date: 20080115
  Serious: No
  Sender: FDA-Public Use
  Company Number: A0639744A

PATIENT
  Age: 59 Year
  Sex: Female

DRUGS (4)
  1. BECONASE [Suspect]
     Dosage: 1SPR TWICE PER DAY
     Route: 045
     Dates: start: 20070210
  2. ASCORBIC ACID [Concomitant]
  3. ASTRAGALUS [Concomitant]
  4. AUGMENTIN '125' [Concomitant]

REACTIONS (2)
  - AGEUSIA [None]
  - ANOSMIA [None]
